FAERS Safety Report 8161944-0 (Version None)
Quarter: 2012Q1

REPORT INFORMATION
  Report Type: 
  Country: None (occurrence: None)
  Receive Date: 20120224
  Receipt Date: 20120221
  Transmission Date: 20120608
  Serious: Yes (Hospitalization, Other)
  Sender: FDA-Public Use
  Company Number: US-MEDIMMUNE-MEDI-0014409

PATIENT
  Sex: Male

DRUGS (8)
  1. SYNAGIS [Suspect]
     Route: 030
     Dates: start: 20111104, end: 20111230
  2. SABRIL [Concomitant]
  3. PRILOSEC [Concomitant]
  4. MIRALAX [Concomitant]
  5. VITAMIN D [Concomitant]
  6. VITAMIN B6 [Concomitant]
  7. LEUCOVORIN CALCIUM [Concomitant]
  8. KLONOPIN [Concomitant]

REACTIONS (2)
  - CONDITION AGGRAVATED [None]
  - RESPIRATORY SYNCYTIAL VIRUS INFECTION [None]
